FAERS Safety Report 4716027-6 (Version None)
Quarter: 2005Q3

REPORT INFORMATION
  Report Type: 
  Country: None (occurrence: None)
  Receive Date: 20050718
  Receipt Date: 20050418
  Transmission Date: 20060218
  Serious: Yes (Hospitalization)
  Sender: FDA-Public Use
  Company Number: US-MERCK-0504USA03457

PATIENT
  Age: 67 Year
  Sex: Male
  Weight: 79 kg

DRUGS (5)
  1. VIOXX [Suspect]
     Indication: ARTHRITIS
     Route: 048
     Dates: start: 19990101, end: 20040801
  2. ASPIRIN [Concomitant]
     Route: 065
  3. HYTRIN [Concomitant]
     Indication: BENIGN PROSTATIC HYPERPLASIA
     Route: 065
  4. SEREVENT [Concomitant]
     Route: 065
  5. FLOVENT [Concomitant]
     Route: 065

REACTIONS (27)
  - ACUTE MYOCARDIAL INFARCTION [None]
  - BRONCHITIS ACUTE [None]
  - CERUMEN IMPACTION [None]
  - COLON ADENOMA [None]
  - COLONIC POLYP [None]
  - CORONARY ARTERY DISEASE [None]
  - COUGH [None]
  - DIVERTICULUM [None]
  - DIZZINESS [None]
  - DYSPNOEA EXERTIONAL [None]
  - ERECTILE DYSFUNCTION [None]
  - FATIGUE [None]
  - GASTROINTESTINAL DISORDER [None]
  - HYPERCHOLESTEROLAEMIA [None]
  - HYPOACUSIS [None]
  - HYPOAESTHESIA [None]
  - HYPOTENSION [None]
  - INGROWING NAIL [None]
  - INTERSTITIAL LUNG DISEASE [None]
  - LYME DISEASE [None]
  - NASAL CONGESTION [None]
  - ORTHOSTATIC HYPOTENSION [None]
  - POSTNASAL DRIP [None]
  - PROSTATE CANCER [None]
  - THROAT IRRITATION [None]
  - VIRAL INFECTION [None]
  - WHEEZING [None]
